FAERS Safety Report 6342083-8 (Version None)
Quarter: 2009Q3

REPORT INFORMATION
  Report Type: 
  Country: None (occurrence: None)
  Receive Date: 20090903
  Receipt Date: 20090903
  Transmission Date: 20100115
  Serious: Yes (Other)
  Sender: FDA-Public Use
  Company Number: None

PATIENT
  Sex: Female
  Weight: 66.6788 kg

DRUGS (1)
  1. RECLAST [Suspect]
     Indication: OSTEOPOROSIS POSTMENOPAUSAL
     Dosage: 5MG ANNUAL IV ONE IV INFUSION
     Route: 042
     Dates: start: 20081023, end: 20081023

REACTIONS (5)
  - ARTHRALGIA [None]
  - BONE PAIN [None]
  - MUSCULOSKELETAL PAIN [None]
  - MYALGIA [None]
  - PAIN IN EXTREMITY [None]
